FAERS Safety Report 23032343 (Version 1)
Quarter: 2023Q4

REPORT INFORMATION
  Report Type: Spontaneous
  Country: US (occurrence: US)
  Receive Date: 20231005
  Receipt Date: 20231005
  Transmission Date: 20240109
  Serious: Yes (Other)
  Sender: FDA-Public Use
  Company Number: US-AMGEN-USASP2023172479

PATIENT
  Age: 64 Year
  Sex: Female

DRUGS (2)
  1. BLINCYTO [Suspect]
     Active Substance: BLINATUMOMAB
     Indication: Acute lymphocytic leukaemia
     Dosage: PLANNED FOR 9MCG PER DAY FOR 7 DAYS, THEN 28MCG FOR 2 DAYS AFTER. 119MCG
     Route: 065
  2. BLINCYTO [Suspect]
     Active Substance: BLINATUMOMAB
     Indication: Tyrosine kinase mutation
     Dosage: PLANNED FOR 9MCG PER DAY FOR 7 DAYS, THEN 28MCG FOR 2 DAYS AFTER. 119MCG
     Route: 065

REACTIONS (1)
  - Neurotoxicity [Unknown]

NARRATIVE: CASE EVENT DATE: 20230925
